FAERS Safety Report 18777979 (Version 2)
Quarter: 2021Q1

REPORT INFORMATION
  Report Type: Spontaneous
  Country: AL (occurrence: AL)
  Receive Date: 20210122
  Receipt Date: 20210129
  Transmission Date: 20210419
  Serious: Yes (Hospitalization)
  Sender: FDA-Public Use
  Company Number: AL-ROCHE-2755278

PATIENT
  Age: 54 Year
  Sex: Male

DRUGS (5)
  1. PANTOPRAZOLE [Concomitant]
     Active Substance: PANTOPRAZOLE
     Dates: start: 20210115
  2. PAROL [Concomitant]
     Active Substance: ACETAMINOPHEN
     Dates: start: 20210115
  3. MABTHERA [Suspect]
     Active Substance: RITUXIMAB
     Indication: DERMATOMYOSITIS
     Route: 042
     Dates: start: 20210115
  4. LEMOD SOLU [Concomitant]
     Active Substance: METHYLPREDNISOLONE SODIUM SUCCINATE
     Indication: PREMEDICATION
     Dates: start: 20210115
  5. SYNOPEN [Concomitant]
     Active Substance: CHLOROPYRAMINE HYDROCHLORIDE
     Dosage: 20 MG/2 ML
     Dates: start: 20210115

REACTIONS (7)
  - Hyperhidrosis [Recovered/Resolved]
  - Upper respiratory tract congestion [Recovered/Resolved]
  - Intentional product use issue [Unknown]
  - Dyspnoea [Recovered/Resolved]
  - Chest discomfort [Recovered/Resolved]
  - Oxygen saturation [Recovered/Resolved]
  - Off label use [Unknown]

NARRATIVE: CASE EVENT DATE: 20210115
